FAERS Safety Report 9973221 (Version 2)
Quarter: 2014Q1

REPORT INFORMATION
  Report Type: Report from Study
  Country: US (occurrence: US)
  Receive Date: 20140306
  Receipt Date: 20140306
  Transmission Date: 20141002
  Serious: No
  Sender: FDA-Public Use
  Company Number: US-ABBVIE-13P-163-1144926-00

PATIENT
  Age: 36 Year
  Sex: Female

DRUGS (10)
  1. HUMIRA [Suspect]
     Indication: CROHN^S DISEASE
     Dates: start: 20130812, end: 20130812
  2. HUMIRA [Suspect]
     Dates: start: 20130826, end: 20130826
  3. HUMIRA [Suspect]
     Dates: end: 20130908
  4. HUMIRA [Suspect]
     Dates: start: 20130908
  5. APRISO [Concomitant]
     Indication: COELIAC DISEASE
     Dosage: AT BEDTIME
  6. SYNTHROID [Concomitant]
     Indication: HYPOTHYROIDISM
  7. KLONOPIN [Concomitant]
     Indication: RESTLESS LEGS SYNDROME
     Dosage: AT BEDTIME
  8. VICODIN [Concomitant]
     Indication: PAIN
     Dosage: 5/325 AS NEEDED
  9. BENTYL [Concomitant]
     Indication: MUSCLE SPASMS
     Dosage: AS NEEDED
  10. MORPHINE SULFATE [Concomitant]
     Dosage: VERY 6 HR AS NEEDED

REACTIONS (20)
  - Constipation [Unknown]
  - Muscle spasms [Not Recovered/Not Resolved]
  - Diarrhoea [Unknown]
  - Pain [Unknown]
  - Abdominal pain [Not Recovered/Not Resolved]
  - Abdominal distension [Not Recovered/Not Resolved]
  - Fatigue [Not Recovered/Not Resolved]
  - Fatigue [Not Recovered/Not Resolved]
  - Injection site pain [Not Recovered/Not Resolved]
  - Injection site erythema [Not Recovered/Not Resolved]
  - Weight decreased [Not Recovered/Not Resolved]
  - Decreased appetite [Not Recovered/Not Resolved]
  - Injection site bruising [Not Recovered/Not Resolved]
  - Abdominal pain [Not Recovered/Not Resolved]
  - Arthralgia [Unknown]
  - Arthralgia [Unknown]
  - Drug ineffective [Not Recovered/Not Resolved]
  - Crohn^s disease [Not Recovered/Not Resolved]
  - Acne [Not Recovered/Not Resolved]
  - Skin mass [Not Recovered/Not Resolved]
